FAERS Safety Report 6973617-8 (Version None)
Quarter: 2010Q3

REPORT INFORMATION
  Report Type: 
  Country: None (occurrence: None)
  Receive Date: 20100907
  Receipt Date: 20100830
  Transmission Date: 20110219
  Serious: Yes (Other)
  Sender: FDA-Public Use
  Company Number: 2010SP046509

PATIENT
  Sex: Male

DRUGS (1)
  1. PEG-INTRON [Suspect]

REACTIONS (1)
  - ACUTE LEUKAEMIA [None]
